FAERS Safety Report 5175845-3 (Version None)
Quarter: 2006Q4

REPORT INFORMATION
  Report Type: 
  Country: None (occurrence: None)
  Receive Date: 20061215
  Receipt Date: 20061204
  Transmission Date: 20070319
  Serious: Yes (Hospitalization)
  Sender: FDA-Public Use
  Company Number: PHNU2006DE04053

PATIENT
  Sex: Female

DRUGS (10)
  1. TEGRETOL [Suspect]
     Indication: EPILEPSY
     Dosage: 0-400-200 MG/DAY
  2. ATACAND [Suspect]
     Dosage: 1-0-0 TABLET/DAY
     Route: 048
  3. EBRANTIL [Suspect]
     Dosage: 1-1-1 DF/DAY
  4. CONCOR [Suspect]
     Dosage: 1-0-0 DF/DAY
     Route: 048
  5. NORVASC [Suspect]
     Dosage: 2-0-0 DF/DAY
     Route: 048
  6. SPIRO COMP. [Suspect]
     Dosage: 1-0-0 DF/DAY
  7. ACETYLSALICYLIC ACID SRT [Concomitant]
     Dosage: 0-1-0 DF/DAY
  8. SIMVASTATIN [Concomitant]
     Dosage: 0-0-1 DF/DAY
  9. CYNT [Suspect]
     Dosage: 1-0-1 DF/DAY
     Route: 048
  10. TOREM [Suspect]
     Dosage: 1-0-1 MG/DAY

REACTIONS (3)
  - DRUG INTERACTION [None]
  - HYPERTENSION [None]
  - HYPERTENSIVE CRISIS [None]
